FAERS Safety Report 6624029-8 (Version None)
Quarter: 2010Q1

REPORT INFORMATION
  Report Type: 
  Country: None (occurrence: None)
  Receive Date: 20100310
  Receipt Date: 20100227
  Transmission Date: 20100710
  Serious: Yes (Hospitalization, Other)
  Sender: FDA-Public Use
  Company Number: PHHY2009MX26591

PATIENT
  Age: 55 Year
  Sex: Female

DRUGS (4)
  1. CO-DIOVAN [Suspect]
     Indication: HYPERTENSION
     Dosage: 1 TABLET (160/25 MG) PER DAY
     Route: 048
     Dates: start: 20060201, end: 20100217
  2. NEXIUM [Concomitant]
     Indication: GASTROINTESTINAL DISORDER
     Dosage: 1 TABLET PER DAY
  3. PANTOZOL [Concomitant]
     Indication: GASTROINTESTINAL MOTILITY DISORDER
     Dosage: 1 TABLET PER DAY
     Route: 048
  4. LOPRESSOR [Concomitant]
     Indication: HYPERTENSION
     Dosage: HALF TABLET PER DAY
     Route: 048

REACTIONS (9)
  - ANXIETY [None]
  - CEREBRAL ARTERY EMBOLISM [None]
  - GASTROINTESTINAL INFLAMMATION [None]
  - GASTROINTESTINAL MOTILITY DISORDER [None]
  - HEADACHE [None]
  - HEMIPLEGIA [None]
  - HYPERTENSION [None]
  - SPEECH DISORDER [None]
  - TINNITUS [None]
